FAERS Safety Report 9632924 (Version 1)
Quarter: 2013Q4

REPORT INFORMATION
  Report Type: Spontaneous
  Country: TR (occurrence: TR)
  Receive Date: 20131018
  Receipt Date: 20131018
  Transmission Date: 20140711
  Serious: Yes (Other)
  Sender: FDA-Public Use
  Company Number: PHHY2013TR115558

PATIENT
  Age: 3 Year
  Sex: Male

DRUGS (19)
  1. PARACETAMOL [Suspect]
     Indication: PYREXIA
     Dosage: 250 MG, UNK
  2. PARACETAMOL [Suspect]
     Dosage: 5 MG, UNK
  3. PARACETAMOL [Suspect]
     Dosage: 10 MG, UNK
  4. PARACETAMOL [Suspect]
     Dosage: 50 MG, UNK
  5. PARACETAMOL [Suspect]
     Dosage: 200 MG, UNK
  6. KETOPROFEN [Suspect]
     Dosage: 5 MG, UNK
  7. KETOPROFEN [Suspect]
     Dosage: 5 MG, UNK
  8. KETOPROFEN [Suspect]
     Dosage: 20 MG, UNK
  9. IBUPROFEN [Suspect]
     Dosage: 10 MG
     Route: 048
  10. IBUPROFEN [Suspect]
     Dosage: 20 MG
     Route: 048
  11. IBUPROFEN [Suspect]
     Dosage: 80 MG
     Route: 048
  12. IBUPROFEN [Suspect]
     Dosage: 150 MG
     Route: 048
  13. METAMIZOLE [Suspect]
     Indication: PYREXIA
     Dosage: UNK UKN, UNK
  14. METAMIZOLE [Suspect]
     Dosage: 62.5 MG, UNK
  15. METAMIZOLE [Suspect]
     Dosage: 125 MG, UNK
  16. METAMIZOLE [Suspect]
     Dosage: 250 MG, UNK
  17. METAMIZOLE [Suspect]
     Dosage: 500 MG, UNK
  18. IBUPROFEN [Suspect]
     Dosage: 100 MG, UNK
  19. KETOPROFEN [Suspect]
     Indication: PYREXIA
     Dosage: 5 MG, UNK

REACTIONS (3)
  - Angioedema [Unknown]
  - Face oedema [Unknown]
  - Lip oedema [Unknown]
